FAERS Safety Report 8415015-6 (Version None)
Quarter: 2012Q2

REPORT INFORMATION
  Report Type: 
  Country: None (occurrence: None)
  Receive Date: 20120606
  Receipt Date: 20120528
  Transmission Date: 20120825
  Serious: Yes (Hospitalization)
  Sender: FDA-Public Use
  Company Number: JP-VERTEX PHARMACEUTICALS INC.-AE-2012-004844

PATIENT
  Age: 49 Year
  Sex: Male

DRUGS (16)
  1. AZULOXA [Concomitant]
     Route: 048
     Dates: start: 20120223
  2. PREDNISOLONE [Concomitant]
     Route: 048
  3. PEG-INTRON [Concomitant]
     Indication: HEPATITIS C
     Route: 058
     Dates: start: 20120206
  4. AZULOXA [Concomitant]
     Route: 048
     Dates: start: 20120302
  5. PROMACTA [Concomitant]
     Route: 048
     Dates: start: 20120206
  6. AZULOXA [Concomitant]
     Route: 048
     Dates: start: 20120227
  7. AZULOXA [Concomitant]
     Route: 048
     Dates: start: 20120308
  8. AZULOXA [Concomitant]
     Route: 048
     Dates: start: 20120323
  9. AZULOXA [Concomitant]
     Route: 048
     Dates: start: 20120405
  10. AZULOXA [Concomitant]
     Route: 048
     Dates: start: 20120426
  11. REBETOL [Concomitant]
     Indication: HEPATITIS C
     Route: 048
     Dates: start: 20120206
  12. FAMOGAST D [Concomitant]
     Route: 048
     Dates: start: 20120216
  13. EPINASTINE HYDROCHLORIDE [Concomitant]
  14. AZULOXA [Concomitant]
     Route: 048
     Dates: start: 20120216
  15. AZULOXA [Concomitant]
     Route: 048
     Dates: start: 20120329
  16. TELAVIC (TELAPREVIR) [Suspect]
     Indication: HEPATITIS C
     Route: 048
     Dates: start: 20120206, end: 20120502

REACTIONS (1)
  - ERYTHEMA [None]
